FAERS Safety Report 8798831 (Version 1)
Quarter: 2012Q4

REPORT INFORMATION
  Report Type: Report from Study
  Country: US (occurrence: US)
  Receive Date: 20120920
  Receipt Date: 20120920
  Transmission Date: 20130627
  Serious: Yes (Other)
  Sender: FDA-Public Use
  Company Number: US-GLAXOSMITHKLINE-A0993877A

PATIENT
  Age: 56 Year
  Sex: Female
  Weight: 64 kg

DRUGS (17)
  1. MELPHALAN [Suspect]
     Indication: STEM CELL TRANSPLANT
     Dosage: 200MGM2 Cyclic
     Route: 042
     Dates: start: 20120724, end: 20120725
  2. BORTEZOMIB [Suspect]
     Indication: MULTIPLE MYELOMA
     Dosage: 1.3MGM2 Cyclic
     Route: 042
     Dates: start: 20120319
  3. LENALIDOMIDE [Suspect]
     Indication: MULTIPLE MYELOMA
     Dosage: 20MG Cyclic
     Route: 048
     Dates: start: 20120319
  4. DEXAMETHASONE [Suspect]
     Indication: MULTIPLE MYELOMA
     Dosage: 20MG Cyclic
     Route: 048
     Dates: start: 20120319
  5. FILGRASTIM [Concomitant]
  6. DIPYRIDAMOLE [Concomitant]
  7. PREGABALIN [Concomitant]
  8. ARTIFICIAL TEARS [Concomitant]
  9. CALCIUM CITRATE [Concomitant]
  10. CLONAZEPAM [Concomitant]
  11. ROSUVASTATIN [Concomitant]
  12. BISACODYL [Concomitant]
  13. FLUTICASONE PROPIONATE [Concomitant]
  14. LEVOTHYROXINE SODIUM [Concomitant]
  15. LISINOPRIL [Concomitant]
  16. ESOMEPRAZOLE MAGNESIUM [Concomitant]
  17. TRAMADOL [Concomitant]

REACTIONS (2)
  - Thrombocytopenia [Unknown]
  - Neutropenia [Unknown]
